FAERS Safety Report 6516054-2 (Version None)
Quarter: 2009Q4

REPORT INFORMATION
  Report Type: 
  Country: None (occurrence: None)
  Receive Date: 20091216
  Receipt Date: 20090928
  Transmission Date: 20100525
  Serious: Yes (Other)
  Sender: FDA-Public Use
  Company Number: DSA_41748_2009

PATIENT
  Sex: Male

DRUGS (8)
  1. XENAZINE [Suspect]
     Indication: TOURETTE'S DISORDER
     Dosage: 62.5 MG, 25 MG TID ORAL
     Route: 048
     Dates: start: 20090905
  2. XENAZINE [Suspect]
     Indication: TOURETTE'S DISORDER
     Dosage: 62.5 MG, 25 MG TID ORAL
     Route: 048
     Dates: start: 20090930
  3. WELLBUTRIN [Concomitant]
  4. LIPITOR [Concomitant]
  5. HYZAAR [Concomitant]
  6. KAPIDEX [Concomitant]
  7. FISH OIL [Concomitant]
  8. HERBAL MEDICINES [Concomitant]

REACTIONS (4)
  - DEPRESSED MOOD [None]
  - FATIGUE [None]
  - SOMNOLENCE [None]
  - SUICIDAL IDEATION [None]
